FAERS Safety Report 20100963 (Version 1)
Quarter: 2021Q4

REPORT INFORMATION
  Report Type: Spontaneous
  Country: US (occurrence: None)
  Receive Date: 20211122
  Receipt Date: 20211122
  Transmission Date: 20220303
  Serious: Yes (Other)
  Sender: FDA-Public Use
  Company Number: None

PATIENT
  Age: 63 Year
  Sex: Female
  Weight: 99 kg

DRUGS (2)
  1. REGEN-COV [Suspect]
     Active Substance: CASIRIVIMAB\IMDEVIMAB
     Indication: COVID-19
     Dosage: FREQUENCY : ONCE;?
     Route: 041
  2. REGEN-COV [Suspect]
     Active Substance: CASIRIVIMAB\IMDEVIMAB
     Indication: COVID-19
     Dosage: FREQUENCY : ONCE;?
     Route: 041

REACTIONS (11)
  - Nausea [None]
  - Flushing [None]
  - Chest discomfort [None]
  - Pain [None]
  - Pain in extremity [None]
  - Dyspnoea [None]
  - Back pain [None]
  - Headache [None]
  - Blood pressure systolic increased [None]
  - Blood pressure diastolic increased [None]
  - Infusion related reaction [None]

NARRATIVE: CASE EVENT DATE: 20211119
